FAERS Safety Report 21286643 (Version 1)
Quarter: 2022Q3

REPORT INFORMATION
  Report Type: Spontaneous
  Country: US (occurrence: US)
  Receive Date: 20220902
  Receipt Date: 20220902
  Transmission Date: 20221026
  Serious: Yes (Other)
  Sender: FDA-Public Use
  Company Number: US-SA-SAC20220830000971

PATIENT
  Sex: Male

DRUGS (2)
  1. ZANTAC [Suspect]
     Active Substance: RANITIDINE HYDROCHLORIDE
     Dosage: UNK, OVER THE COUNTER FROM APPROXIMATELY 2006 TO 2012
     Route: 048
     Dates: start: 2006, end: 2012
  2. RANITIDINE [Suspect]
     Active Substance: RANITIDINE
     Dosage: UNK, OVER THE COUNTER FROM APPROXIMATELY 2006 TO 2012
     Route: 048
     Dates: start: 200601, end: 2012

REACTIONS (1)
  - Prostate cancer [Unknown]
